FAERS Safety Report 9177301 (Version 1)
Quarter: 2013Q1

REPORT INFORMATION
  Report Type: Spontaneous
  Country: US (occurrence: None)
  Receive Date: 20130320
  Receipt Date: 20130320
  Transmission Date: 20140127
  Serious: Yes (Hospitalization)
  Sender: FDA-Public Use
  Company Number: None

PATIENT
  Age: 34 Year
  Sex: Female
  Weight: 75.5 kg

DRUGS (1)
  1. CETIRIZINE [Suspect]
     Indication: ANGIOEDEMA
     Route: 048
     Dates: start: 20130204, end: 20130204

REACTIONS (3)
  - Pharyngeal oedema [None]
  - Nausea [None]
  - Vomiting [None]
